FAERS Safety Report 6410853-3 (Version None)
Quarter: 2009Q4

REPORT INFORMATION
  Report Type: 
  Country: None (occurrence: None)
  Receive Date: 20091022
  Receipt Date: 20091009
  Transmission Date: 20100525
  Serious: Yes (Other)
  Sender: FDA-Public Use
  Company Number: PHEH2009US13518

PATIENT
  Sex: Female

DRUGS (1)
  1. DIOVAN HCT [Suspect]
     Dosage: UNK
     Dates: start: 20050101

REACTIONS (3)
  - ABDOMINAL PAIN [None]
  - GASTROINTESTINAL DISORDER [None]
  - GASTROINTESTINAL SURGERY [None]
